FAERS Safety Report 16349681 (Version 1)
Quarter: 2019Q2

REPORT INFORMATION
  Report Type: Spontaneous
  Country: US (occurrence: US)
  Receive Date: 20190523
  Receipt Date: 20190523
  Transmission Date: 20190711
  Serious: No
  Sender: FDA-Public Use
  Company Number: US-JNJFOC-20190507537

PATIENT
  Sex: Female

DRUGS (2)
  1. WOMENS ROGAINE UNSCENTED [Suspect]
     Active Substance: MINOXIDIL
     Route: 061
  2. WOMENS ROGAINE UNSCENTED [Suspect]
     Active Substance: MINOXIDIL
     Indication: PRODUCT USED FOR UNKNOWN INDICATION
     Dosage: ONCE EVERY OTHER DAY (SHOULD BE USED DAILY) ,DOUBLE THE DOSE TO COVER THE ENTIRE SCALP
     Route: 061

REACTIONS (3)
  - Overdose [Unknown]
  - Application site irritation [Unknown]
  - Inappropriate schedule of product administration [Unknown]
